FAERS Safety Report 18126052 (Version 1)
Quarter: 2020Q3

REPORT INFORMATION
  Report Type: Report from Study
  Country: None (occurrence: US)
  Receive Date: 20200808
  Receipt Date: 20200808
  Transmission Date: 20201103
  Serious: Yes (Other)
  Sender: FDA-Public Use
  Company Number: US-ABBVIE-20P-163-3365427-00

PATIENT
  Sex: Female

DRUGS (2)
  1. IMBRUVICA [Suspect]
     Active Substance: IBRUTINIB
     Route: 048
  2. IMBRUVICA [Suspect]
     Active Substance: IBRUTINIB
     Indication: LYMPHOCYTOSIS
     Route: 048
     Dates: start: 20190424

REACTIONS (8)
  - Depressed mood [Not Recovered/Not Resolved]
  - Back disorder [Not Recovered/Not Resolved]
  - Cardiac disorder [Unknown]
  - Gait disturbance [Unknown]
  - Chondropathy [Not Recovered/Not Resolved]
  - Pain [Unknown]
  - Arthropathy [Unknown]
  - Oedema peripheral [Unknown]
